FAERS Safety Report 8152878-6 (Version None)
Quarter: 2012Q1

REPORT INFORMATION
  Report Type: 
  Country: None (occurrence: None)
  Receive Date: 20120216
  Receipt Date: 20120216
  Transmission Date: 20120608
  Serious: Yes (Other)
  Sender: FDA-Public Use
  Company Number: None

PATIENT

DRUGS (1)
  1. BENZONATATE [Suspect]

REACTIONS (3)
  - ANAPHYLACTIC SHOCK [None]
  - INCORRECT ROUTE OF DRUG ADMINISTRATION [None]
  - SELF-MEDICATION [None]
